FAERS Safety Report 11556195 (Version 2)
Quarter: 2015Q3

REPORT INFORMATION
  Report Type: Spontaneous
  Country: US (occurrence: US)
  Receive Date: 20150916
  Receipt Date: 20150916
  Transmission Date: 20151125
  Serious: No
  Sender: FDA-Public Use
  Company Number: US-ELI_LILLY_AND_COMPANY-US200804003395

PATIENT
  Age: 49 Year
  Sex: Female

DRUGS (2)
  1. FORTEO [Suspect]
     Active Substance: TERIPARATIDE
     Indication: BONE DENSITY DECREASED
     Dosage: UNK, DAILY (1/D)
     Dates: start: 20080328, end: 2008
  2. FORTEO [Suspect]
     Active Substance: TERIPARATIDE
     Dosage: UNK, UNK
     Dates: start: 2008

REACTIONS (13)
  - Breast swelling [Not Recovered/Not Resolved]
  - Peripheral swelling [Not Recovered/Not Resolved]
  - Breast swelling [Recovered/Resolved]
  - Musculoskeletal stiffness [Recovered/Resolved]
  - Feeling abnormal [Not Recovered/Not Resolved]
  - Peripheral swelling [Recovered/Resolved]
  - Chest pain [Recovered/Resolved]
  - Vaginal discharge [Recovered/Resolved]
  - Feeling abnormal [Recovered/Resolved]
  - Musculoskeletal stiffness [Not Recovered/Not Resolved]
  - Abdominal distension [Not Recovered/Not Resolved]
  - Abdominal distension [Recovered/Resolved]
  - Vaginal discharge [Not Recovered/Not Resolved]

NARRATIVE: CASE EVENT DATE: 2008
